FAERS Safety Report 15480559 (Version 3)
Quarter: 2024Q3

REPORT INFORMATION
  Report Type: Spontaneous
  Country: FR (occurrence: FR)
  Receive Date: 20181010
  Receipt Date: 20240917
  Transmission Date: 20241017
  Serious: Yes (Death)
  Sender: ROCHE
  Company Number: FR-NOVPHSZ-PHHY2018FR107005

PATIENT
  Age: 57 Year
  Sex: Female

DRUGS (8)
  1. MYCOPHENOLATE MOFETIL [Suspect]
     Active Substance: MYCOPHENOLATE MOFETIL
     Indication: Renal transplant
     Route: 065
     Dates: end: 201111
  2. MYCOPHENOLATE MOFETIL [Suspect]
     Active Substance: MYCOPHENOLATE MOFETIL
     Indication: Immunosuppressant drug therapy
  3. TACROLIMUS [Suspect]
     Active Substance: TACROLIMUS
     Indication: Renal transplant
     Route: 065
     Dates: end: 201111
  4. TACROLIMUS [Suspect]
     Active Substance: TACROLIMUS
     Indication: Immunosuppressant drug therapy
  5. SIROLIMUS [Concomitant]
     Active Substance: SIROLIMUS
     Indication: Renal transplant
     Dates: start: 201111
  6. SIROLIMUS [Concomitant]
     Active Substance: SIROLIMUS
     Indication: Immunosuppressant drug therapy
  7. PREDNISONE [Concomitant]
     Active Substance: PREDNISONE
     Indication: Immunosuppressant drug therapy
     Dosage: UNK
     Route: 065
     Dates: start: 201111
  8. PREDNISONE [Concomitant]
     Active Substance: PREDNISONE
     Indication: Renal transplant

REACTIONS (4)
  - Metastases to central nervous system [Fatal]
  - Metastases to lymph nodes [Fatal]
  - Metastases to bone [Fatal]
  - Lentigo maligna [Fatal]

NARRATIVE: CASE EVENT DATE: 20100101
